FAERS Safety Report 16647087 (Version 2)
Quarter: 2019Q3

REPORT INFORMATION
  Report Type: Spontaneous
  Country: US (occurrence: US)
  Receive Date: 20190730
  Receipt Date: 20190805
  Transmission Date: 20191004
  Serious: Yes (Other)
  Sender: FDA-Public Use
  Company Number: US-CHIESI USA, INC.-US-2019CHI000286

PATIENT

DRUGS (2)
  1. CUROSURF [Suspect]
     Active Substance: PORACTANT ALFA
     Indication: NEONATAL RESPIRATORY DISTRESS SYNDROME
     Dosage: 200 MG, SINGLE
     Route: 007
     Dates: start: 20190716, end: 20190716
  2. ERYTHROMYCIN. [Concomitant]
     Active Substance: ERYTHROMYCIN
     Indication: PRODUCT USED FOR UNKNOWN INDICATION
     Dosage: UNK

REACTIONS (4)
  - Acute respiratory failure [Recovered/Resolved]
  - Product physical consistency issue [Not Recovered/Not Resolved]
  - Heart rate decreased [Recovered/Resolved]
  - Product complaint [Not Recovered/Not Resolved]

NARRATIVE: CASE EVENT DATE: 20190716
